FAERS Safety Report 10174467 (Version 2)
Quarter: 2014Q2

REPORT INFORMATION
  Report Type: Spontaneous
  Country: FR (occurrence: FR)
  Receive Date: 20140515
  Receipt Date: 20140515
  Transmission Date: 20141212
  Serious: Yes (Other)
  Sender: FDA-Public Use
  Company Number: FR-GILEAD-2010-0033062

PATIENT
  Age: 21 Year
  Sex: Female
  Weight: 70 kg

DRUGS (3)
  1. TRUVADA [Suspect]
     Indication: HIV INFECTION
     Route: 065
     Dates: start: 20061201
  2. KALETRA [Concomitant]
     Indication: HIV INFECTION
     Route: 065
     Dates: start: 20061201
  3. TARDYFERON B9 [Concomitant]
     Indication: SUPPLEMENTATION THERAPY
     Route: 065
     Dates: start: 20061201

REACTIONS (2)
  - Amniotic fluid volume increased [Recovered/Resolved]
  - Pregnancy [Recovered/Resolved]
